FAERS Safety Report 14031006 (Version 1)
Quarter: 2017Q4

REPORT INFORMATION
  Report Type: Report from Study
  Country: JP (occurrence: JP)
  Receive Date: 20171002
  Receipt Date: 20171002
  Transmission Date: 20180321
  Serious: Yes (Other)
  Sender: FDA-Public Use
  Company Number: JP-TEVA-810046ISR

PATIENT
  Age: 25 Year
  Sex: Female

DRUGS (5)
  1. ESTRANA [Concomitant]
     Active Substance: ESTRADIOL
     Dosage: 2.88 MILLIGRAM DAILY;
     Route: 062
     Dates: start: 20170607, end: 20170721
  2. PREMARIN [Concomitant]
     Active Substance: ESTROGENS, CONJUGATED
     Indication: PROGESTIN REPLACEMENT THERAPY
     Dosage: .625 MILLIGRAM DAILY;
     Route: 048
     Dates: start: 20170609, end: 20170721
  3. PREDONINE [Concomitant]
     Active Substance: PREDNISOLONE
     Indication: PROGESTIN REPLACEMENT THERAPY
     Dosage: 10 MILLIGRAM DAILY;
     Route: 048
     Dates: start: 20170611, end: 20170617
  4. ESTRANA [Concomitant]
     Active Substance: ESTRADIOL
     Indication: PROGESTIN REPLACEMENT THERAPY
     Dosage: .72 MILLIGRAM DAILY;
     Route: 062
     Dates: start: 20170528, end: 20170608
  5. LUTEUM VAGINAL SUPPOSITORY 400MG [Suspect]
     Active Substance: PROGESTERONE
     Indication: PROGESTIN REPLACEMENT THERAPY
     Dosage: 800 MILLIGRAM DAILY;
     Route: 067
     Dates: start: 20170611, end: 20170707

REACTIONS (1)
  - Abortion missed [Recovering/Resolving]

NARRATIVE: CASE EVENT DATE: 20170721
